FAERS Safety Report 10022366 (Version 1)
Quarter: 2013Q4

REPORT INFORMATION
  Report Type: Spontaneous
  Country: US (occurrence: None)
  Receive Date: 20131223
  Receipt Date: 20131223
  Transmission Date: 20140711
  Serious: Yes (Other)
  Sender: FDA-Public Use
  Company Number: WIL-002-13-US

PATIENT
  Age: 5 Year
  Sex: Female

DRUGS (1)
  1. WILATE [Suspect]
     Dosage: 435 IU (1X 1 / D)?

REACTIONS (2)
  - Oedema mouth [None]
  - Rash generalised [None]
